FAERS Safety Report 6606544-6 (Version None)
Quarter: 2010Q1

REPORT INFORMATION
  Report Type: 
  Country: None (occurrence: None)
  Receive Date: 20100226
  Receipt Date: 20100216
  Transmission Date: 20100710
  Serious: Yes (Hospitalization, Other)
  Sender: FDA-Public Use
  Company Number: FR-ABBOTT-10P-056-0626983-00

PATIENT
  Age: 38 Year

DRUGS (1)
  1. DEPAKENE [Suspect]

REACTIONS (3)
  - LACTIC ACIDOSIS [None]
  - POISONING DELIBERATE [None]
  - RENAL FAILURE [None]
